FAERS Safety Report 19452263 (Version 1)
Quarter: 2021Q2

REPORT INFORMATION
  Report Type: Spontaneous
  Country: US (occurrence: US)
  Receive Date: 20210623
  Receipt Date: 20210623
  Transmission Date: 20210717
  Serious: No
  Sender: FDA-Public Use
  Company Number: US-ACCORD-191016

PATIENT
  Age: 57 Year
  Sex: Female
  Weight: 81.65 kg

DRUGS (1)
  1. CLONAZEPAM ACCORD [Suspect]
     Active Substance: CLONAZEPAM
     Indication: ILL-DEFINED DISORDER
     Dosage: STRENGTH: 1 MG

REACTIONS (1)
  - Drug ineffective [Unknown]
